FAERS Safety Report 12440715 (Version 1)
Quarter: 2016Q2

REPORT INFORMATION
  Report Type: Spontaneous
  Country: US (occurrence: US)
  Receive Date: 20160606
  Receipt Date: 20160606
  Transmission Date: 20160815
  Serious: No
  Sender: FDA-Public Use
  Company Number: US-LUNDBECK-DKLU2014346

PATIENT
  Age: 84 Year
  Sex: Female

DRUGS (3)
  1. NORTHERA [Suspect]
     Active Substance: DROXIDOPA
     Indication: PRODUCT USED FOR UNKNOWN INDICATION
     Dosage: SCHEDULE B, MODIFIED
     Route: 065
     Dates: start: 20160502
  2. NORTHERA [Suspect]
     Active Substance: DROXIDOPA
     Route: 065
     Dates: start: 20160512
  3. NORTHERA [Suspect]
     Active Substance: DROXIDOPA
     Dosage: SCHEDULE B, MODIFIED
     Route: 065

REACTIONS (3)
  - Fatigue [Unknown]
  - Dizziness postural [Not Recovered/Not Resolved]
  - Blood pressure increased [Recovered/Resolved]

NARRATIVE: CASE EVENT DATE: 20160511
